FAERS Safety Report 17172171 (Version 2)
Quarter: 2019Q4

REPORT INFORMATION
  Report Type: Spontaneous
  Country: US (occurrence: US)
  Receive Date: 20191219
  Receipt Date: 20191227
  Transmission Date: 20200122
  Serious: Yes (Life-Threatening, Hospitalization, Other)
  Sender: FDA-Public Use
  Company Number: US-PFIZER INC-2019548939

PATIENT
  Age: 59 Year
  Sex: Female

DRUGS (5)
  1. APIXABAN [Suspect]
     Active Substance: APIXABAN
     Indication: CEREBROVASCULAR ACCIDENT PROPHYLAXIS
     Dosage: 5 MG, 2X/DAY (5 MILLIGRAMS, BID)/(HOSPITAL DAY 2)
     Route: 065
  2. HEPARIN SODIUM. [Suspect]
     Active Substance: HEPARIN SODIUM
     Indication: ATRIAL FIBRILLATION
     Dosage: UNK, 2X/DAY (BID)/(DRIP 4 H AFTER THE APIXABAN WAS HELD)/(INFUSION)
     Route: 041
  3. ENOXAPARIN [Concomitant]
     Active Substance: ENOXAPARIN
     Indication: ATRIAL FIBRILLATION
     Dosage: 120 MG, 2X/DAY
     Route: 058
  4. HEPARIN SODIUM. [Suspect]
     Active Substance: HEPARIN SODIUM
     Dosage: UNK (HEPARIN DRIP WAS RESTARTED)
     Route: 041
  5. APIXABAN [Suspect]
     Active Substance: APIXABAN
     Indication: ATRIAL FIBRILLATION

REACTIONS (2)
  - Shock haemorrhagic [Recovering/Resolving]
  - Retroperitoneal haemorrhage [Recovering/Resolving]
